FAERS Safety Report 13832656 (Version 1)
Quarter: 2017Q3

REPORT INFORMATION
  Report Type: Spontaneous
  Country: US (occurrence: US)
  Receive Date: 20170803
  Receipt Date: 20170803
  Transmission Date: 20171127
  Serious: No
  Sender: FDA-Public Use
  Company Number: US-ROCHE-703201

PATIENT
  Age: 72 Year
  Sex: Female

DRUGS (2)
  1. CALCIUM [Concomitant]
     Active Substance: CALCIUM
     Route: 065
  2. BONIVA [Suspect]
     Active Substance: IBANDRONATE SODIUM
     Indication: OSTEOPOROSIS
     Route: 048

REACTIONS (6)
  - Pain in extremity [Recovering/Resolving]
  - Dyspepsia [Recovering/Resolving]
  - Proctalgia [Recovering/Resolving]
  - Chills [Recovering/Resolving]
  - Appetite disorder [Recovering/Resolving]
  - Irritable bowel syndrome [Recovering/Resolving]

NARRATIVE: CASE EVENT DATE: 201002
